FAERS Safety Report 25611118 (Version 1)
Quarter: 2025Q3

REPORT INFORMATION
  Report Type: Spontaneous
  Country: US (occurrence: None)
  Receive Date: 20250725
  Receipt Date: 20250725
  Transmission Date: 20251020
  Serious: No
  Sender: FDA-CTU
  Company Number: None

PATIENT
  Age: 60 Year
  Sex: Female
  Weight: 63 kg

DRUGS (8)
  1. JOURNAVX [Suspect]
     Active Substance: SUZETRIGINE
  2. MIRTAZAPINE [Concomitant]
     Active Substance: MIRTAZAPINE
  3. KEYTRUDA [Concomitant]
     Active Substance: PEMBROLIZUMAB
  4. ZYRTEC [Concomitant]
     Active Substance: CETIRIZINE HYDROCHLORIDE
  5. Quercitin/Bromelin supplement [Concomitant]
  6. Nervive [Concomitant]
  7. Circumin supplement [Concomitant]
  8. B vitamin supplement [Concomitant]

REACTIONS (2)
  - Paraesthesia [None]
  - Adverse drug reaction [None]

NARRATIVE: CASE EVENT DATE: 20250626
